FAERS Safety Report 14675786 (Version 3)
Quarter: 2018Q2

REPORT INFORMATION
  Report Type: Report from Study
  Country: US (occurrence: US)
  Receive Date: 20180323
  Receipt Date: 20180416
  Transmission Date: 20180711
  Serious: Yes (Other)
  Sender: FDA-Public Use
  Company Number: US-TEVA-2018-US-873815

PATIENT
  Age: 49 Year
  Sex: Female

DRUGS (1)
  1. CLOZAPINE. [Suspect]
     Active Substance: CLOZAPINE
     Route: 065
     Dates: end: 20180225

REACTIONS (2)
  - Neutropenia [Recovered/Resolved]
  - Granulocytopenia [Unknown]

NARRATIVE: CASE EVENT DATE: 20180223
